FAERS Safety Report 17015067 (Version 1)
Quarter: 2019Q4

REPORT INFORMATION
  Report Type: Spontaneous
  Country: US (occurrence: US)
  Receive Date: 20191108
  Receipt Date: 20191108
  Transmission Date: 20200122
  Serious: Yes (Hospitalization)
  Sender: FDA-Public Use
  Company Number: None

PATIENT
  Age: 6 Year
  Sex: Male

DRUGS (2)
  1. ORKAMBI [Suspect]
     Active Substance: IVACAFTOR\LUMACAFTOR
     Indication: CYSTIC FIBROSIS
     Route: 048
     Dates: start: 20190108
  2. PULMOZYME [Concomitant]
     Active Substance: DORNASE ALFA
     Dates: start: 20180130

REACTIONS (1)
  - Therapy change [None]

NARRATIVE: CASE EVENT DATE: 20191022
